FAERS Safety Report 8150196 (Version 2)
Quarter: 2013Q1

REPORT INFORMATION
  Report Type: Spontaneous
  Country: US (occurrence: US)
  Receive Date: 20110922
  Receipt Date: 20130215
  Transmission Date: 20140127
  Serious: Yes (Other)
  Sender: FDA-Public Use
  Company Number: US-ASTRAZENECA-2011SE12499

PATIENT
  Age: 39 Year
  Sex: Female

DRUGS (14)
  1. SEROQUEL [Suspect]
     Route: 048
     Dates: start: 20040225
  2. SEROQUEL [Suspect]
     Route: 048
     Dates: start: 20080623
  3. DEPAKOTE [Concomitant]
     Dates: start: 20040225
  4. DIPHENHYDRAMINE [Concomitant]
     Dates: start: 20040225
  5. EFFEXOR [Concomitant]
     Dates: start: 20040225
  6. EFFEXOR [Concomitant]
     Dates: start: 20080623
  7. BEXTRA [Concomitant]
     Dates: start: 20040303
  8. ABILIFY [Concomitant]
     Dosage: 10-15 MG
     Dates: start: 20040308
  9. VERAMYST [Concomitant]
     Dates: start: 20080623
  10. TOPAMAX [Concomitant]
     Dates: start: 20080623
  11. SYNTHROID [Concomitant]
     Indication: THYROID HORMONE REPLACEMENT THERAPY
     Dates: start: 20080623
  12. LISINOPRIL [Concomitant]
     Dates: start: 20080623
  13. LIPITOR [Concomitant]
     Dates: start: 20080623
  14. TRIGLIDE [Concomitant]
     Dates: start: 20080623

REACTIONS (3)
  - Pancreatitis [Unknown]
  - Diabetic coma [Unknown]
  - Type 2 diabetes mellitus [Unknown]
